FAERS Safety Report 18223310 (Version 1)
Quarter: 2020Q3

REPORT INFORMATION
  Report Type: Spontaneous
  Country: US (occurrence: US)
  Receive Date: 20200902
  Receipt Date: 20200902
  Transmission Date: 20201103
  Serious: No
  Sender: FDA-Public Use
  Company Number: US-ENDO PHARMACEUTICALS INC-2019-106529

PATIENT
  Sex: Female

DRUGS (1)
  1. DELESTROGEN [Suspect]
     Active Substance: ESTRADIOL VALERATE
     Indication: TRANSGENDER HORMONAL THERAPY
     Dosage: 20 MG/ML, WEEKLY ONCE
     Route: 065
     Dates: start: 2007

REACTIONS (5)
  - Product physical consistency issue [Unknown]
  - Off label use [Not Recovered/Not Resolved]
  - Breast atrophy [Unknown]
  - Drug ineffective for unapproved indication [Unknown]
  - Breast pain [Unknown]
